FAERS Safety Report 11939971 (Version 1)
Quarter: 2016Q1

REPORT INFORMATION
  Report Type: Spontaneous
  Country: PL (occurrence: PL)
  Receive Date: 20160122
  Receipt Date: 20160122
  Transmission Date: 20160526
  Serious: Yes (Other)
  Sender: FDA-Public Use
  Company Number: PL-ACTAVIS-2016-00694

PATIENT
  Age: 44 Year
  Sex: Female

DRUGS (2)
  1. LEVOSERT [Suspect]
     Active Substance: LEVONORGESTREL
     Indication: MENORRHAGIA
  2. LEVOSERT [Suspect]
     Active Substance: LEVONORGESTREL
     Indication: CONTRACEPTION
     Dosage: 20 MCG, DAILY
     Route: 015
     Dates: start: 20151207, end: 20151230

REACTIONS (4)
  - Malaise [Unknown]
  - Device dislocation [Unknown]
  - Haemorrhage [Unknown]
  - Vulvovaginal discomfort [Unknown]

NARRATIVE: CASE EVENT DATE: 20151230
